FAERS Safety Report 11277186 (Version 1)
Quarter: 2015Q3

REPORT INFORMATION
  Report Type: Spontaneous
  Country: SE (occurrence: SE)
  Receive Date: 20150716
  Receipt Date: 20150716
  Transmission Date: 20151125
  Serious: Yes (Life-Threatening, Hospitalization)
  Sender: FDA-Public Use
  Company Number: SE-TEVA-578202ISR

PATIENT
  Age: 53 Year
  Sex: Female

DRUGS (1)
  1. SIMVASTATIN TABLETTER PER ORAL [Suspect]
     Active Substance: SIMVASTATIN
     Route: 065

REACTIONS (4)
  - Pain in extremity [Recovered/Resolved with Sequelae]
  - Contusion [Recovered/Resolved with Sequelae]
  - Muscular weakness [Recovered/Resolved with Sequelae]
  - Myalgia [Recovered/Resolved with Sequelae]
